FAERS Safety Report 18480833 (Version 1)
Quarter: 2020Q4

REPORT INFORMATION
  Report Type: Spontaneous
  Country: FR (occurrence: FR)
  Receive Date: 20201109
  Receipt Date: 20201109
  Transmission Date: 20210114
  Serious: Yes (Other)
  Sender: FDA-Public Use
  Company Number: FR-ALLERGAN-2042706US

PATIENT
  Sex: Female

DRUGS (1)
  1. GANFORT [Suspect]
     Active Substance: BIMATOPROST\TIMOLOL
     Indication: PRODUCT USED FOR UNKNOWN INDICATION
     Route: 047

REACTIONS (7)
  - Eye operation [Unknown]
  - Retinal disorder [Unknown]
  - Ocular hyperaemia [Unknown]
  - Cataract [Unknown]
  - Glaucoma [Unknown]
  - Myopia [Unknown]
  - Intraocular pressure test abnormal [Unknown]
